FAERS Safety Report 8612244 (Version 2)
Quarter: 2012Q4

REPORT INFORMATION
  Report Type: 
  Country: US (occurrence: US)
  Receive Date: 20120613
  Receipt Date: 20120829
  Transmission Date: 20130627
  Serious: Yes (Hospitalization)
  Sender: FDA-Public Use
  Company Number: US-BAYER-2012-057577

PATIENT
  Age: 29 Year
  Sex: Female
  Weight: 76 kg

DRUGS (7)
  1. YAZ [Suspect]
  2. GIANVI [Suspect]
  3. VICODIN [Concomitant]
  4. TRAMADOL HYDROCHLORIDE [Concomitant]
     Indication: MUSCLE RELAXANT THERAPY
     Dosage: 50 mg, every 6 hours
     Route: 048
     Dates: start: 20110609
  5. MELOXICAM [Concomitant]
     Dosage: 15 mg, UNK
     Dates: start: 20110609
  6. CELEBREX [Concomitant]
     Dosage: 200 mg, UNK
     Route: 048
     Dates: start: 20110629
  7. CORTISONE [Concomitant]
     Indication: BACK PAIN

REACTIONS (2)
  - Pulmonary embolism [Recovered/Resolved]
  - Deep vein thrombosis [None]
